APPROVED DRUG PRODUCT: CANDESARTAN CILEXETIL
Active Ingredient: CANDESARTAN CILEXETIL
Strength: 4MG
Dosage Form/Route: TABLET;ORAL
Application: A210302 | Product #001 | TE Code: AB
Applicant: ALEMBIC PHARMACEUTICALS LTD
Approved: Dec 4, 2018 | RLD: No | RS: No | Type: RX